FAERS Safety Report 4512946-4 (Version None)
Quarter: 2004Q4

REPORT INFORMATION
  Report Type: 
  Country: None (occurrence: None)
  Receive Date: 20041130
  Receipt Date: 20041118
  Transmission Date: 20050328
  Serious: Yes (Other)
  Sender: FDA-Public Use
  Company Number: US-BRISTOL-MYERS SQUIBB COMPANY-12772208

PATIENT
  Age: 19 Year
  Sex: Male

DRUGS (1)
  1. ABILIFY [Suspect]
     Indication: SCHIZOPHRENIA
     Dosage: STARTED 10 MG/DAY, INC TO 15 MG/DAY 12-OCT-04, INC TO 20 MG/DAY 1 WEEK LATER, DEC TO 10 MG/DAY
     Route: 048
     Dates: start: 20040907

REACTIONS (3)
  - SCHIZOPHRENIA [None]
  - SEXUAL DYSFUNCTION [None]
  - WEIGHT DECREASED [None]
